FAERS Safety Report 13072965 (Version 1)
Quarter: 2016Q4

REPORT INFORMATION
  Report Type: Spontaneous
  Country: US (occurrence: US)
  Receive Date: 20161229
  Receipt Date: 20161229
  Transmission Date: 20170207
  Serious: Yes (Other)
  Sender: FDA-Public Use
  Company Number: US-SA-2016SA007961

PATIENT
  Age: 71 Year
  Sex: Female
  Weight: 57.1 kg

DRUGS (11)
  1. ACYCLOVIR. [Suspect]
     Active Substance: ACYCLOVIR
     Indication: URINARY TRACT INFECTION
     Route: 048
  2. IMITREX [Suspect]
     Active Substance: SUMATRIPTAN SUCCINATE
     Route: 065
  3. SYNTHROID [Concomitant]
     Active Substance: LEVOTHYROXINE SODIUM
  4. ACYCLOVIR. [Suspect]
     Active Substance: ACYCLOVIR
     Indication: PROPHYLAXIS
     Route: 048
  5. MOZOBIL [Suspect]
     Active Substance: PLERIXAFOR
     Indication: WHITE BLOOD CELL COUNT ABNORMAL
     Route: 065
  6. SEPTRA [Suspect]
     Active Substance: SULFAMETHOXAZOLE\TRIMETHOPRIM
     Route: 065
  7. CIPROFLOXACIN. [Suspect]
     Active Substance: CIPROFLOXACIN
     Indication: URINARY TRACT INFECTION
     Route: 048
     Dates: start: 2014, end: 2014
  8. CIPROFLOXACIN. [Suspect]
     Active Substance: CIPROFLOXACIN
     Indication: URINARY TRACT INFECTION
     Route: 048
     Dates: start: 2013, end: 2013
  9. CLEOCIN [Suspect]
     Active Substance: CLINDAMYCIN PHOSPHATE
     Indication: STREPTOCOCCAL INFECTION
     Route: 067
     Dates: start: 20151217, end: 20151218
  10. LEVOFLOXACIN. [Suspect]
     Active Substance: LEVOFLOXACIN
     Route: 065
  11. NYSTATIN. [Suspect]
     Active Substance: NYSTATIN
     Route: 065

REACTIONS (11)
  - Tendonitis [Unknown]
  - Nausea [Unknown]
  - Urticaria [Unknown]
  - Confusional state [Recovered/Resolved]
  - Gait disturbance [Unknown]
  - Dizziness [Recovering/Resolving]
  - Anaphylactic shock [Unknown]
  - Retching [Unknown]
  - Neuropathy peripheral [Unknown]
  - Rash [Unknown]
  - Headache [Unknown]
